FAERS Safety Report 7867494-0 (Version None)
Quarter: 2011Q4

REPORT INFORMATION
  Report Type: 
  Country: None (occurrence: None)
  Receive Date: 20111028
  Receipt Date: 20111014
  Transmission Date: 20120403
  Serious: Yes (Hospitalization)
  Sender: FDA-Public Use
  Company Number: PHHO2011JP18032

PATIENT
  Sex: Female

DRUGS (13)
  1. GILENYA [Suspect]
     Dosage: 0.5 MG, QD
     Route: 048
     Dates: start: 20090427
  2. TRIQUILAR [Concomitant]
     Dosage: 0 TO 1 TAB
     Route: 048
  3. METHYCOBAL [Concomitant]
     Dosage: 1500 MCG
     Route: 048
  4. LENDORMIN [Concomitant]
     Dosage: 0.25 MG, UNK
     Route: 048
  5. MAGMITT [Concomitant]
     Dosage: 1.5 MG, UNK
     Route: 048
  6. HYALEIN [Concomitant]
     Dosage: 6 GTT, UNK
     Route: 031
  7. PURSENNID [Concomitant]
     Dosage: 48 MG, PRN
     Route: 048
  8. XALATAN [Concomitant]
     Dosage: 2 GTT, UNK
     Route: 031
  9. CINAL [Concomitant]
     Dosage: 600 MG, UNK
     Route: 048
     Dates: start: 20100923
  10. PROTOPIC [Concomitant]
     Dosage: UNK
     Route: 061
     Dates: start: 20090626
  11. CEFAZOLIN SODIUM [Concomitant]
     Dosage: 3 TAB
     Route: 048
     Dates: start: 20090926
  12. TRANEXAMIC ACID [Concomitant]
     Dosage: 750 MG, UNK
     Route: 048
     Dates: start: 20110513
  13. DEPAS [Concomitant]
     Dosage: 0.5 TO 1 MG
     Route: 048

REACTIONS (2)
  - MYOCLONUS [None]
  - CONVULSION [None]
